FAERS Safety Report 13773270 (Version 1)
Quarter: 2017Q3

REPORT INFORMATION
  Report Type: Spontaneous
  Country: US (occurrence: US)
  Receive Date: 20170720
  Receipt Date: 20170720
  Transmission Date: 20171127
  Serious: Yes (Death, Hospitalization, Other)
  Sender: FDA-Public Use
  Company Number: US-009507513-1707USA006670

PATIENT
  Age: 75 Year
  Sex: Male
  Weight: 92 kg

DRUGS (17)
  1. DECADRON [Suspect]
     Active Substance: DEXAMETHASONE
     Indication: PROPHYLAXIS
     Dosage: UNK
     Dates: start: 20170323
  2. CHOLECALCIFEROL [Concomitant]
     Active Substance: CHOLECALCIFEROL
     Route: 048
  3. GLIMEPIRIDE. [Concomitant]
     Active Substance: GLIMEPIRIDE
     Dosage: 1 MG ONCE A DAY
     Route: 048
     Dates: start: 2011
  4. LORCASERIN HYDROCHLORIDE [Suspect]
     Active Substance: LORCASERIN HYDROCHLORIDE
     Indication: WEIGHT CONTROL
     Dosage: 2 IN 1 D
     Route: 048
     Dates: start: 20141103, end: 20170327
  5. KOMBIGLYZE XR [Concomitant]
     Active Substance: METFORMIN HYDROCHLORIDE\SAXAGLIPTIN HYDROCHLORIDE
     Dosage: 25-1000MG ONCE A DAY
     Route: 048
     Dates: start: 201504
  6. RAMIPRIL. [Concomitant]
     Active Substance: RAMIPRIL
     Dosage: 5 MG ONCE A DAY
     Route: 048
     Dates: start: 2010
  7. TRIAMCINOLONE [Concomitant]
     Active Substance: TRIAMCINOLONE
     Route: 061
  8. LORCASERIN HYDROCHLORIDE [Concomitant]
     Active Substance: LORCASERIN HYDROCHLORIDE
     Dosage: 100 MG ONCE A DAY
     Route: 048
     Dates: start: 2009
  9. ATORVASTATIN [Concomitant]
     Active Substance: ATORVASTATIN
     Dosage: 40 MG ONCE A DAY
     Route: 048
     Dates: start: 2007
  10. ASPIRIN. [Concomitant]
     Active Substance: ASPIRIN
     Dosage: 81 MG ONCE DAY
     Route: 048
     Dates: start: 2013
  11. PRILOSEC [Concomitant]
     Active Substance: OMEPRAZOLE MAGNESIUM
     Dosage: 1 TABLET ONCE A DAY
     Route: 048
     Dates: start: 2013
  12. FUROSEMIDE. [Concomitant]
     Active Substance: FUROSEMIDE
     Route: 048
  13. CALCITRENE [Concomitant]
     Active Substance: CALCIPOTRIENE
     Route: 061
  14. HUMIRA [Concomitant]
     Active Substance: ADALIMUMAB
     Dosage: 40 MG Q2WK
     Route: 058
     Dates: start: 20150813
  15. METOPROLOL. [Concomitant]
     Active Substance: METOPROLOL
     Dosage: 25 MG BID
     Route: 048
     Dates: start: 2007
  16. FERROUS SULFATE. [Concomitant]
     Active Substance: FERROUS SULFATE
     Dosage: 65 MG ONCE A DAY
     Route: 048
     Dates: start: 2013
  17. COLCRYS [Concomitant]
     Active Substance: COLCHICINE
     Dosage: 06 MG, PRN
     Route: 048
     Dates: start: 201506

REACTIONS (1)
  - Diabetic ketoacidosis [Fatal]

NARRATIVE: CASE EVENT DATE: 20170327
